FAERS Safety Report 15647331 (Version 1)
Quarter: 2018Q4

REPORT INFORMATION
  Report Type: Other
  Country: ES (occurrence: ES)
  Receive Date: 20181122
  Receipt Date: 20181122
  Transmission Date: 20190205
  Serious: Yes (Other)
  Sender: FDA-Public Use
  Company Number: ES-APOTEX-2018AP024895

PATIENT
  Age: 68 Year
  Sex: Male

DRUGS (4)
  1. LORAZEPAM. [Concomitant]
     Active Substance: LORAZEPAM
     Indication: ANXIETY
     Dosage: 1 MG, QD
     Route: 048
     Dates: start: 20170324, end: 20170612
  2. AMOXICILINA + ACIDO CLAVULANICO [Concomitant]
     Active Substance: AMOXICILLIN\CLAVULANIC ACID
     Indication: INFECTED SKIN ULCER
     Dosage: UNK UNK, TID
     Route: 042
     Dates: start: 20170322, end: 20170401
  3. CAPTOPRIL. [Suspect]
     Active Substance: CAPTOPRIL
     Indication: HYPERTENSION
     Dosage: 25MG CUANDO PRECISE ; AS NECESSARY
     Route: 048
     Dates: start: 20170429, end: 20170612
  4. MEROPENEM. [Concomitant]
     Active Substance: MEROPENEM
     Indication: INFECTED SKIN ULCER
     Dosage: UNK UNK, TID
     Route: 042
     Dates: start: 20170402, end: 20170405

REACTIONS (1)
  - Eosinophilia [Recovered/Resolved]

NARRATIVE: CASE EVENT DATE: 20170505
